FAERS Safety Report 7283217-0 (Version None)
Quarter: 2011Q1

REPORT INFORMATION
  Report Type: 
  Country: None (occurrence: None)
  Receive Date: 20110209
  Receipt Date: 20110127
  Transmission Date: 20110831
  Serious: Yes (Other)
  Sender: FDA-Public Use
  Company Number: PHHY2010US88113

PATIENT
  Sex: Female

DRUGS (9)
  1. TOPAMAX [Concomitant]
  2. CYMBALTA [Concomitant]
  3. ZANAFLEX [Concomitant]
     Dosage: UNK
  4. GILENYA [Suspect]
     Indication: MULTIPLE SCLEROSIS
     Dosage: UNK
     Route: 048
     Dates: start: 20101222
  5. BACLOFEN [Concomitant]
     Dosage: UNK
  6. GILENYA [Suspect]
     Dosage: 0.5 MG, QD
     Route: 048
     Dates: start: 20101228
  7. LAMICTAL [Concomitant]
     Dosage: UNK
  8. ADDERALL XR 10 [Concomitant]
     Dosage: UNK
  9. OXY [Concomitant]
     Dosage: UNK

REACTIONS (7)
  - BACK PAIN [None]
  - PROTEIN URINE PRESENT [None]
  - PAIN IN EXTREMITY [None]
  - INTERVERTEBRAL DISC PROTRUSION [None]
  - BLOOD CREATINE PHOSPHOKINASE ABNORMAL [None]
  - KIDNEY INFECTION [None]
  - COUGH [None]
